FAERS Safety Report 23762401 (Version 1)
Quarter: 2024Q2

REPORT INFORMATION
  Report Type: Spontaneous
  Country: CA (occurrence: CA)
  Receive Date: 20240419
  Receipt Date: 20240419
  Transmission Date: 20240716
  Serious: Yes (Other)
  Sender: FDA-Public Use
  Company Number: CA-PFIZER INC-202400088981

PATIENT
  Age: 67 Year
  Sex: Female

DRUGS (11)
  1. FILGRASTIM [Suspect]
     Active Substance: FILGRASTIM
  2. PROPRANOLOL HYDROCHLORIDE [Suspect]
     Active Substance: PROPRANOLOL HYDROCHLORIDE
  3. ALLOPURINOL [Suspect]
     Active Substance: ALLOPURINOL
  4. AMLODIPINE [Suspect]
     Active Substance: AMLODIPINE BESYLATE
     Route: 065
  5. ATOVAQUONE [Suspect]
     Active Substance: ATOVAQUONE
     Route: 048
  6. CITALOPRAM HYDROBROMIDE [Suspect]
     Active Substance: CITALOPRAM HYDROBROMIDE
  7. FENTANYL [Suspect]
     Active Substance: FENTANYL\FENTANYL CITRATE
  8. LORATADINE [Suspect]
     Active Substance: LORATADINE
     Route: 065
  9. OLANZAPINE [Suspect]
     Active Substance: OLANZAPINE
  10. PANTOPRAZOLE [Suspect]
     Active Substance: PANTOPRAZOLE
  11. VALACYCLOVIR [Suspect]
     Active Substance: VALACYCLOVIR HYDROCHLORIDE

REACTIONS (1)
  - Febrile neutropenia [Unknown]
